FAERS Safety Report 7411882 (Version 4)
Quarter: 2012Q4

REPORT INFORMATION
  Report Type: 
  Country: JP (occurrence: JP)
  Receive Date: 20100607
  Receipt Date: 20121009
  Transmission Date: 20130627
  Serious: Yes (Hospitalization, Other)
  Sender: FDA-Public Use
  Company Number: JP-ROCHE-706979

PATIENT
  Age: 29 Year
  Sex: Female
  Weight: 59 kg

DRUGS (21)
  1. ACTEMRA [Suspect]
     Indication: RHEUMATOID ARTHRITIS
     Dosage: DOSAGE UNCERTAIN.
     Route: 041
     Dates: start: 20100121, end: 20100420
  2. ACTEMRA [Suspect]
     Route: 041
     Dates: start: 20120516, end: 20120516
  3. RHEUMATREX [Concomitant]
     Indication: RHEUMATOID ARTHRITIS
     Route: 048
     Dates: start: 20090911, end: 20100420
  4. RHEUMATREX [Concomitant]
     Route: 048
     Dates: start: 20090911, end: 20100511
  5. PREDONINE [Concomitant]
     Indication: RHEUMATOID ARTHRITIS
     Route: 048
  6. PREDONINE [Concomitant]
     Route: 048
  7. LIVALO [Concomitant]
     Route: 048
     Dates: start: 20100203, end: 20100511
  8. CELCOX [Concomitant]
     Indication: PROPHYLAXIS AGAINST GASTROINTESTINAL ULCER
     Dosage: DRUG REPORTED AS CELECOX
     Route: 048
     Dates: start: 20100317, end: 20100603
  9. ZANTAC [Concomitant]
     Indication: PROPHYLAXIS AGAINST GASTROINTESTINAL ULCER
     Route: 048
     Dates: start: 20100317, end: 20100603
  10. MUCOSTA [Concomitant]
     Indication: PROPHYLAXIS AGAINST GASTROINTESTINAL ULCER
     Route: 048
     Dates: start: 20090728, end: 20100603
  11. ONEALFA [Concomitant]
     Indication: PROPHYLAXIS
     Route: 048
  12. FOLIAMIN [Concomitant]
     Route: 048
     Dates: start: 20090911, end: 20100511
  13. METHOTREXATE [Concomitant]
  14. PREDNISOLONE [Concomitant]
     Indication: RHEUMATOID ARTHRITIS
     Route: 048
     Dates: start: 2001
  15. PITAVASTATIN [Concomitant]
  16. RANITIDINE [Concomitant]
  17. REBAMIPIDE [Concomitant]
  18. FOLIAMIN [Concomitant]
     Indication: ADVERSE DRUG REACTION
     Route: 065
     Dates: start: 20090911, end: 20100511
  19. NEORAL [Concomitant]
     Indication: RHEUMATOID ARTHRITIS
     Route: 048
     Dates: start: 20100910
  20. MEDROL [Concomitant]
     Indication: RHEUMATOID ARTHRITIS
     Route: 048
     Dates: start: 2010
  21. ORENCIA [Concomitant]
     Indication: RHEUMATOID ARTHRITIS
     Route: 041
     Dates: end: 2012

REACTIONS (4)
  - Urticaria [Recovering/Resolving]
  - Eosinophilia [Recovering/Resolving]
  - Rash [Recovered/Resolved]
  - Eosinophilia [Recovered/Resolved]
